FAERS Safety Report 5121182-2 (Version None)
Quarter: 2006Q4

REPORT INFORMATION
  Report Type: 
  Country: None (occurrence: None)
  Receive Date: 20061002
  Receipt Date: 20060920
  Transmission Date: 20070319
  Serious: Yes (Hospitalization)
  Sender: FDA-Public Use
  Company Number: 20063217

PATIENT
  Sex: Female

DRUGS (1)
  1. LIORESAL [Suspect]
     Indication: MUSCLE SPASTICITY
     Dosage: 1100 MCG DAILY INTRATHECAL
     Route: 037

REACTIONS (3)
  - DISEASE RECURRENCE [None]
  - MUSCLE SPASTICITY [None]
  - PYREXIA [None]
